FAERS Safety Report 15434720 (Version 1)
Quarter: 2018Q3

REPORT INFORMATION
  Report Type: Spontaneous
  Country: US (occurrence: US)
  Receive Date: 20180927
  Receipt Date: 20180927
  Transmission Date: 20181010
  Serious: No
  Sender: FDA-Public Use
  Company Number: US-INDIVIOR LIMITED-INDV-110427-2018

PATIENT
  Sex: Male

DRUGS (3)
  1. SUBOXONE [Suspect]
     Active Substance: BUPRENORPHINE HYDROCHLORIDE\NALOXONE HYDROCHLORIDE
     Indication: PAIN
     Dosage: UNK
     Route: 065
  2. ZUBSOLV [Suspect]
     Active Substance: BUPRENORPHINE HYDROCHLORIDE\NALOXONE HYDROCHLORIDE
     Indication: PAIN
     Dosage: UNK
     Route: 065
  3. BUPRENORPHINE GENERIC TAB [Suspect]
     Active Substance: BUPRENORPHINE
     Indication: PAIN
     Dosage: UNK, GO BACK UP ON HIS DOSE A LITTLE BIT
     Route: 065
     Dates: start: 201801

REACTIONS (2)
  - Adverse event [Unknown]
  - Off label use [Unknown]
